FAERS Safety Report 8229083-8 (Version None)
Quarter: 2012Q1

REPORT INFORMATION
  Report Type: 
  Country: None (occurrence: None)
  Receive Date: 20120322
  Receipt Date: 20120309
  Transmission Date: 20120608
  Serious: Yes (Other)
  Sender: FDA-Public Use
  Company Number: US-WATSON-2012-04556

PATIENT
  Sex: Female

DRUGS (1)
  1. TAMOXIFEN CITRATE [Suspect]
     Indication: BREAST CANCER
     Dosage: 1 TABLET PER DAY
     Route: 048
     Dates: start: 20100101

REACTIONS (3)
  - UTERINE CANCER [None]
  - MALAISE [None]
  - MENORRHAGIA [None]
